FAERS Safety Report 6641556-8 (Version None)
Quarter: 2010Q1

REPORT INFORMATION
  Report Type: 
  Country: None (occurrence: None)
  Receive Date: 20100317
  Receipt Date: 20100317
  Transmission Date: 20100710
  Serious: Yes (Other)
  Sender: FDA-Public Use
  Company Number: None

PATIENT
  Age: 22 Year
  Sex: Female
  Weight: 56.6 kg

DRUGS (11)
  1. ACYCLOVIR [Suspect]
     Indication: INFECTION
     Dosage: 800 MG Q12 PO
     Route: 048
     Dates: start: 20091224, end: 20100119
  2. ACYCLOVIR [Suspect]
     Indication: PROPHYLAXIS
     Dosage: 800 MG Q12 PO
     Route: 048
     Dates: start: 20091224, end: 20100119
  3. CASPOFUNGIN [Concomitant]
  4. DIPHENHYDRAMINE HYDROCHLORIDE [Concomitant]
  5. GLUTAMINE [Concomitant]
  6. LAMSOPRAZOLE [Concomitant]
  7. MAGOX [Concomitant]
  8. M.V.I. [Concomitant]
  9. ONDANSETRON [Concomitant]
  10. TACROLIMUS [Concomitant]
  11. VITE [Concomitant]

REACTIONS (1)
  - DRUG HYPERSENSITIVITY [None]
